FAERS Safety Report 6907642-X (Version None)
Quarter: 2010Q3

REPORT INFORMATION
  Report Type: 
  Country: None (occurrence: None)
  Receive Date: 20100802
  Receipt Date: 20100628
  Transmission Date: 20110219
  Serious: Yes (Other)
  Sender: FDA-Public Use
  Company Number: 2010SP036417

PATIENT
  Age: 49 Year
  Sex: Male

DRUGS (2)
  1. CEDAX [Suspect]
     Indication: EPIDIDYMITIS
     Dosage: 400 MG;
     Dates: start: 20090301
  2. CEDAX [Suspect]
     Indication: ORCHITIS
     Dosage: 400 MG;
     Dates: start: 20090301

REACTIONS (4)
  - DIZZINESS [None]
  - HYPOAESTHESIA [None]
  - HYPOTENSION [None]
  - PARAESTHESIA [None]
